FAERS Safety Report 7298171-5 (Version None)
Quarter: 2011Q1

REPORT INFORMATION
  Report Type: 
  Country: None (occurrence: None)
  Receive Date: 20110207
  Receipt Date: 20110125
  Transmission Date: 20110831
  Serious: Yes (Other)
  Sender: FDA-Public Use
  Company Number: BVT-000565

PATIENT

DRUGS (1)
  1. ANAKINRA (ANAKINRA) [Suspect]
     Indication: JUVENILE ARTHRITIS

REACTIONS (1)
  - HEPATITIS TOXIC [None]
